FAERS Safety Report 9926285 (Version 1)
Quarter: 2014Q1

REPORT INFORMATION
  Report Type: Spontaneous
  Country: US (occurrence: US)
  Receive Date: 20140226
  Receipt Date: 20140226
  Transmission Date: 20141002
  Serious: No
  Sender: FDA-Public Use
  Company Number: US-AMGEN-USASP2013082117

PATIENT
  Age: 78 Year
  Sex: Female

DRUGS (8)
  1. ENBREL [Suspect]
     Indication: RHEUMATOID ARTHRITIS
     Dosage: 50 MG, QWK
     Route: 058
     Dates: start: 20130408
  2. METHOTREXATE [Concomitant]
     Dosage: UNK
  3. PLAQUENIL                          /00072602/ [Concomitant]
     Dosage: UNK
  4. PREDNISONE [Concomitant]
     Dosage: UNK
  5. FOLIC ACID [Concomitant]
     Dosage: UNK
  6. VITAMIN B12                        /00056201/ [Concomitant]
     Dosage: UNK
  7. VITAMIN D                          /00107901/ [Concomitant]
     Dosage: UNK
  8. DHEA [Concomitant]
     Dosage: UNK

REACTIONS (2)
  - Headache [Not Recovered/Not Resolved]
  - Injection site pain [Not Recovered/Not Resolved]
